FAERS Safety Report 18744386 (Version 8)
Quarter: 2025Q3

REPORT INFORMATION
  Report Type: Spontaneous
  Country: US (occurrence: US)
  Receive Date: 20210114
  Receipt Date: 20250803
  Transmission Date: 20251021
  Serious: Yes (Hospitalization, Other)
  Sender: ALEXION PHARMACEUTICALS
  Company Number: 2021A002216

PATIENT
  Age: 55 Year
  Sex: Male
  Weight: 158.76 kg

DRUGS (43)
  1. FARXIGA [Suspect]
     Active Substance: DAPAGLIFLOZIN PROPANEDIOL
     Indication: Type 2 diabetes mellitus
  2. FARXIGA [Suspect]
     Active Substance: DAPAGLIFLOZIN PROPANEDIOL
     Indication: Weight decreased
  3. FARXIGA [Suspect]
     Active Substance: DAPAGLIFLOZIN PROPANEDIOL
     Indication: Blood pressure decreased
  4. GABAPENTIN [Concomitant]
     Active Substance: GABAPENTIN
     Indication: Seizure
  5. LISINOPRIL [Concomitant]
     Active Substance: LISINOPRIL
     Indication: Hypertension
  6. SIMVASTATIN [Concomitant]
     Active Substance: SIMVASTATIN
  7. METFORMIN [Concomitant]
     Active Substance: METFORMIN HYDROCHLORIDE
  8. HYDROCHLOROTHIAZIDE [Concomitant]
     Active Substance: HYDROCHLOROTHIAZIDE
  9. FLUTICASONE [Concomitant]
     Active Substance: FLUTICASONE
  10. ATORVASTATIN [Concomitant]
     Active Substance: ATORVASTATIN
  11. TAMSULOSIN [Concomitant]
     Active Substance: TAMSULOSIN
  12. OXYCODONE [Concomitant]
     Active Substance: OXYCODONE
  13. AMOXICILLIN [Concomitant]
     Active Substance: AMOXICILLIN
  14. JARDIANCE [Concomitant]
     Active Substance: EMPAGLIFLOZIN
  15. AMLODIPINE BESYLATE [Concomitant]
     Active Substance: AMLODIPINE BESYLATE
  16. PREDNISONE [Concomitant]
     Active Substance: PREDNISONE
  17. CYCLOBENZAPRINE [Concomitant]
     Active Substance: CYCLOBENZAPRINE
  18. ASPIRIN [Concomitant]
     Active Substance: ASPIRIN
  19. BUTALBITAL [Concomitant]
     Active Substance: BUTALBITAL
  20. GENTAMICIN [Concomitant]
     Active Substance: GENTAMICIN
  21. VITAMIN D [Concomitant]
     Active Substance: VITAMIN D NOS
  22. IBUPROFEN [Concomitant]
     Active Substance: IBUPROFEN
  23. ACTOS [Concomitant]
     Active Substance: PIOGLITAZONE HYDROCHLORIDE
  24. METFORMIN [Concomitant]
     Active Substance: METFORMIN HYDROCHLORIDE
  25. AMLODIPINE [Concomitant]
     Active Substance: AMLODIPINE BESYLATE
     Indication: Hypertension
  26. TRADJENTA [Concomitant]
     Active Substance: LINAGLIPTIN
  27. NAPROXEN [Concomitant]
     Active Substance: NAPROXEN
  28. ESCITALOPRAM [Concomitant]
     Active Substance: ESCITALOPRAM OXALATE
  29. ALPRAZOLAM [Concomitant]
     Active Substance: ALPRAZOLAM
  30. ISOSORBIDE [Concomitant]
     Active Substance: ISOSORBIDE
  31. CARVEDILOL [Concomitant]
     Active Substance: CARVEDILOL
  32. BACTRIM DS [Concomitant]
     Active Substance: SULFAMETHOXAZOLE\TRIMETHOPRIM
  33. CEPHALEXIN [Concomitant]
     Active Substance: CEPHALEXIN
  34. PIOGLITAZONE [Concomitant]
     Active Substance: PIOGLITAZONE
  35. VALSARTAN [Concomitant]
     Active Substance: VALSARTAN
  36. LINAGLIPTIN [Concomitant]
     Active Substance: LINAGLIPTIN
  37. SERTRALINE HYDROCHLORIDE [Concomitant]
     Active Substance: SERTRALINE HYDROCHLORIDE
  38. METOPROLOL SUCCINATE [Concomitant]
     Active Substance: METOPROLOL SUCCINATE
  39. FLEXERIL [Concomitant]
     Active Substance: CYCLOBENZAPRINE HYDROCHLORIDE
  40. ONDANSETRON [Concomitant]
     Active Substance: ONDANSETRON
  41. OXYCODONE AND ACETAMINOPHEN [Concomitant]
     Active Substance: ACETAMINOPHEN\OXYCODONE HYDROCHLORIDE
  42. HYDROCODONE [Concomitant]
     Active Substance: HYDROCODONE
  43. SERTRALINE [Concomitant]
     Active Substance: SERTRALINE HYDROCHLORIDE

REACTIONS (12)
  - Fournier^s gangrene [Unknown]
  - Acute kidney injury [Unknown]
  - Sepsis [Unknown]
  - Scrotal abscess [Unknown]
  - Renal tubular necrosis [Unknown]
  - Renal failure [Unknown]
  - Chronic kidney disease [Unknown]
  - Hypotension [Unknown]
  - Scrotal pain [Unknown]
  - Wound dehiscence [Unknown]
  - Wound [Unknown]
  - Scrotal injury [Unknown]

NARRATIVE: CASE EVENT DATE: 20181211
